FAERS Safety Report 4557551-9 (Version None)
Quarter: 2005Q1

REPORT INFORMATION
  Report Type: 
  Country: None (occurrence: None)
  Receive Date: 20050120
  Receipt Date: 20050113
  Transmission Date: 20050727
  Serious: Yes (Other)
  Sender: FDA-Public Use
  Company Number: ES-MERCK-0501ESP00012

PATIENT
  Age: 69 Year
  Sex: Male
  Weight: 82 kg

DRUGS (1)
  1. ZETIA [Suspect]
     Route: 048
     Dates: start: 20040401

REACTIONS (1)
  - GYNAECOMASTIA [None]
